FAERS Safety Report 24449449 (Version 1)
Quarter: 2024Q4

REPORT INFORMATION
  Report Type: Spontaneous
  Country: IN (occurrence: IN)
  Receive Date: 20241017
  Receipt Date: 20241017
  Transmission Date: 20250114
  Serious: Yes (Other)
  Sender: UPSHER SMITH LABORATORIES
  Company Number: IN-UPSHER-SMITH LABORATORIES, LLC-20241000173

PATIENT
  Sex: Male

DRUGS (1)
  1. TOPIRAMATE [Suspect]
     Active Substance: TOPIRAMATE
     Indication: Drug withdrawal convulsions
     Dosage: UNK
     Route: 065

REACTIONS (1)
  - Eosinophilic pneumonia acute [Recovered/Resolved]
